FAERS Safety Report 8327050-7 (Version None)
Quarter: 2012Q2

REPORT INFORMATION
  Report Type: 
  Country: None (occurrence: None)
  Receive Date: 20120501
  Receipt Date: 20111209
  Transmission Date: 20120825
  Serious: Yes (Other)
  Sender: FDA-Public Use
  Company Number: US-SANOFI-AVENTIS-2011SA081205

PATIENT
  Age: 78 Year
  Sex: Female
  Weight: 92.27 kg

DRUGS (3)
  1. APIDRA [Suspect]
     Dosage: DOSE:100 UNIT(S)
     Route: 058
     Dates: start: 20111101, end: 20111101
  2. APIDRA [Suspect]
     Dosage: DOSE:100 UNIT(S)
     Route: 058
     Dates: start: 20111101, end: 20111101
  3. LANTUS [Concomitant]

REACTIONS (3)
  - DYSPNOEA [None]
  - DYSPHAGIA [None]
  - THROAT TIGHTNESS [None]
